FAERS Safety Report 17559987 (Version 36)
Quarter: 2025Q3

REPORT INFORMATION
  Report Type: Report from Study
  Country: US (occurrence: US)
  Receive Date: 20200319
  Receipt Date: 20250928
  Transmission Date: 20251020
  Serious: Yes (Hospitalization, Other)
  Sender: TAKEDA
  Company Number: US-SHIRE-US202010294

PATIENT
  Age: 76 Year
  Sex: Female
  Weight: 78 kg

DRUGS (54)
  1. .ALPHA.1-PROTEINASE INHIBITOR HUMAN [Suspect]
     Active Substance: .ALPHA.1-PROTEINASE INHIBITOR HUMAN
     Indication: Alpha-1 antitrypsin deficiency
     Dosage: UNK UNK, 1/WEEK
     Dates: start: 20050524
  2. .ALPHA.1-PROTEINASE INHIBITOR HUMAN [Suspect]
     Active Substance: .ALPHA.1-PROTEINASE INHIBITOR HUMAN
     Indication: Immune system disorder
     Dosage: 60 MILLIGRAM/KILOGRAM, 1/WEEK
     Dates: start: 20050525
  3. .ALPHA.1-PROTEINASE INHIBITOR HUMAN [Suspect]
     Active Substance: .ALPHA.1-PROTEINASE INHIBITOR HUMAN
     Indication: Chronic obstructive pulmonary disease
     Dosage: 60 MILLIGRAM/KILOGRAM, 1/WEEK
     Dates: start: 20060919
  4. .ALPHA.1-PROTEINASE INHIBITOR HUMAN [Suspect]
     Active Substance: .ALPHA.1-PROTEINASE INHIBITOR HUMAN
     Indication: Lower respiratory tract infection
     Dosage: 60 MILLIGRAM/KILOGRAM, 1/WEEK
  5. CEFTAZIDIME [Suspect]
     Active Substance: CEFTAZIDIME
     Indication: Product used for unknown indication
  6. ELIQUIS [Concomitant]
     Active Substance: APIXABAN
  7. LEVETIRACETAM [Concomitant]
     Active Substance: LEVETIRACETAM
  8. FLUARIX NOS [Concomitant]
     Active Substance: INFLUENZA VIRUS VACCINE
  9. DIPHENHYDRAMINE [Concomitant]
     Active Substance: DIPHENHYDRAMINE
  10. HEPARIN [Concomitant]
     Active Substance: HEPARIN SODIUM
  11. Dulcolax [Concomitant]
  12. ASPIRIN [Concomitant]
     Active Substance: ASPIRIN
  13. ALBUTEROL SULFATE [Concomitant]
     Active Substance: ALBUTEROL SULFATE
  14. SODIUM CHLORIDE [Concomitant]
     Active Substance: SODIUM CHLORIDE
  15. EPINEPHRINE [Concomitant]
     Active Substance: EPINEPHRINE
  16. BREO ELLIPTA [Concomitant]
     Active Substance: FLUTICASONE FUROATE\VILANTEROL TRIFENATATE
  17. FUROSEMIDE [Concomitant]
     Active Substance: FUROSEMIDE
  18. IBUPROFEN [Concomitant]
     Active Substance: IBUPROFEN
  19. TRAMADOL [Concomitant]
     Active Substance: TRAMADOL
  20. RECLAST [Concomitant]
     Active Substance: ZOLEDRONIC ACID
  21. OMEPRAZOLE [Concomitant]
     Active Substance: OMEPRAZOLE
  22. PREDNISONE [Concomitant]
     Active Substance: PREDNISONE
  23. AMITRIPTYLINE [Concomitant]
     Active Substance: AMITRIPTYLINE
  24. OXYGEN [Concomitant]
     Active Substance: OXYGEN
  25. FLONASE ALLERGY RELIEF [Concomitant]
     Active Substance: FLUTICASONE PROPIONATE
  26. MODERNA COVID-19 VACCINE [Concomitant]
     Active Substance: ELASOMERAN
  27. CLOTRIMAZOLE [Concomitant]
     Active Substance: CLOTRIMAZOLE
  28. SHINGRIX [Concomitant]
     Active Substance: RECOMBINANT VARICELLA ZOSTER VIRUS (VZV) GLYCOPROTEIN E
  29. LISINOPRIL [Concomitant]
     Active Substance: LISINOPRIL
  30. MIRALAX [Concomitant]
     Active Substance: POLYETHYLENE GLYCOL 3350
  31. DOXYCYCLINE HYCLATE [Concomitant]
     Active Substance: DOXYCYCLINE HYCLATE
  32. VITAMIN D3 [Concomitant]
     Active Substance: CHOLECALCIFEROL
  33. GABAPENTIN [Concomitant]
     Active Substance: GABAPENTIN
  34. FOLIC ACID [Concomitant]
     Active Substance: FOLIC ACID
  35. CRESTOR [Concomitant]
     Active Substance: ROSUVASTATIN CALCIUM
  36. HONEY [Concomitant]
     Active Substance: HONEY
  37. CEPHALEXIN [Concomitant]
     Active Substance: CEPHALEXIN
  38. MICONAZOLE [Concomitant]
     Active Substance: MICONAZOLE
  39. METHOCARBAMOL [Concomitant]
     Active Substance: METHOCARBAMOL
  40. CYCLOBENZAPRINE [Concomitant]
     Active Substance: CYCLOBENZAPRINE
  41. ALENDRONATE SODIUM [Concomitant]
     Active Substance: ALENDRONATE SODIUM
  42. ACETAMINOPHEN [Concomitant]
     Active Substance: ACETAMINOPHEN
  43. CALCIUM CARBONATE [Concomitant]
     Active Substance: CALCIUM CARBONATE
  44. METRONIDAZOLE [Concomitant]
     Active Substance: METRONIDAZOLE
  45. KLOR-CON [Concomitant]
     Active Substance: POTASSIUM CHLORIDE
  46. VITAMIN D [Concomitant]
     Active Substance: VITAMIN D NOS
  47. FISH OIL\OMEGA-3 FATTY ACIDS [Concomitant]
     Active Substance: FISH OIL\OMEGA-3 FATTY ACIDS
  48. DOXYCYCLINE [Concomitant]
     Active Substance: DOXYCYCLINE
  49. CIPRO [Concomitant]
     Active Substance: CIPROFLOXACIN HYDROCHLORIDE
  50. TRAMADOL HCL [Concomitant]
     Active Substance: TRAMADOL HYDROCHLORIDE
  51. POTASSIUM CHLORIDE [Concomitant]
     Active Substance: POTASSIUM CHLORIDE
  52. AMITRIPTYLINE HYDROCHLORIDE [Concomitant]
     Active Substance: AMITRIPTYLINE HYDROCHLORIDE
  53. DIPHENHYDRAMINE HYDROCHLORIDE [Concomitant]
     Active Substance: DIPHENHYDRAMINE HYDROCHLORIDE
  54. BIOTIN [Concomitant]
     Active Substance: BIOTIN

REACTIONS (32)
  - Skin infection [Unknown]
  - Pneumonia viral [Unknown]
  - Pneumonia [Unknown]
  - Respiratory syncytial virus infection [Unknown]
  - Illness [Unknown]
  - Fall [Unknown]
  - Injury [Unknown]
  - Pelvic fracture [Unknown]
  - Upper limb fracture [Unknown]
  - Choking [Recovered/Resolved]
  - Hip fracture [Unknown]
  - Drug hypersensitivity [Unknown]
  - Skin exfoliation [Unknown]
  - Intentional dose omission [Unknown]
  - Burns second degree [Unknown]
  - Inappropriate schedule of product administration [Unknown]
  - Incorrect dose administered [Unknown]
  - Productive cough [Unknown]
  - Weight decreased [Unknown]
  - Fungal foot infection [Unknown]
  - Product dose omission issue [Unknown]
  - Sputum discoloured [Unknown]
  - Product availability issue [Unknown]
  - Insurance issue [Unknown]
  - Product use issue [Unknown]
  - Pain [Unknown]
  - Lung disorder [Unknown]
  - Sinusitis [Unknown]
  - Malaise [Unknown]
  - Back pain [Unknown]
  - Cough [Unknown]
  - Dyspnoea [Unknown]

NARRATIVE: CASE EVENT DATE: 20220919
